FAERS Safety Report 19230721 (Version 1)
Quarter: 2021Q2

REPORT INFORMATION
  Report Type: Spontaneous
  Country: US (occurrence: US)
  Receive Date: 20210507
  Receipt Date: 20210507
  Transmission Date: 20210717
  Serious: Yes (Death)
  Sender: FDA-Public Use
  Company Number: None

PATIENT
  Age: 73 Year
  Sex: Male
  Weight: 80.1 kg

DRUGS (16)
  1. MEGESTROL ACETATE. [Concomitant]
     Active Substance: MEGESTROL ACETATE
  2. IRON (FERROUS SULFATE) [Concomitant]
  3. EZETIMIBE. [Concomitant]
     Active Substance: EZETIMIBE
  4. GLIPIZIDE. [Concomitant]
     Active Substance: GLIPIZIDE
  5. MULTIVITAMIN ADULTS 50+ [Concomitant]
  6. PREDNISONE. [Concomitant]
     Active Substance: PREDNISONE
  7. LUPRON DEPOT (6?MONTH) [Concomitant]
  8. LUBIPROSTONE [Concomitant]
     Active Substance: LUBIPROSTONE
  9. ABIRATERONE. [Suspect]
     Active Substance: ABIRATERONE ACETATE
     Indication: PROSTATE CANCER
     Route: 048
     Dates: start: 20210216, end: 20210427
  10. BICALUTAMIDE. [Concomitant]
     Active Substance: BICALUTAMIDE
  11. LORATADINE. [Concomitant]
     Active Substance: LORATADINE
  12. LOSARTAN POTASSIUM?HCTZ [Concomitant]
     Active Substance: HYDROCHLOROTHIAZIDE\LOSARTAN POTASSIUM
  13. ROSUVASTATIN CALCIUM. [Concomitant]
     Active Substance: ROSUVASTATIN CALCIUM
  14. TAMSULOSIN HCL [Concomitant]
     Active Substance: TAMSULOSIN HYDROCHLORIDE
  15. CALCIUM 600 [Concomitant]
     Active Substance: CALCIUM
  16. DOCUSATE SODIUM. [Concomitant]
     Active Substance: DOCUSATE SODIUM

REACTIONS (1)
  - Death [None]
